FAERS Safety Report 18820036 (Version 1)
Quarter: 2021Q1

REPORT INFORMATION
  Report Type: Spontaneous
  Country: DE (occurrence: DE)
  Receive Date: 20210202
  Receipt Date: 20210202
  Transmission Date: 20210419
  Serious: Yes (Hospitalization, Congenital Anomaly, Other)
  Sender: FDA-Public Use
  Company Number: DE-009507513-2101DEU012500

PATIENT
  Age: 1 Day
  Sex: Female
  Weight: 1.23 kg

DRUGS (5)
  1. FOLIC ACID. [Concomitant]
     Active Substance: FOLIC ACID
     Indication: PROPHYLAXIS OF NEURAL TUBE DEFECT
     Dosage: DOSAGE INFORMATION: NOT REPORTED, 5.6. ? 27.5. GESTATIONAL WEEK
     Route: 064
     Dates: start: 20190905, end: 20200205
  2. MIRTAZAPINE. [Suspect]
     Active Substance: MIRTAZAPINE
     Indication: SLEEP DISORDER
     Dosage: DOSAGE INFORMATION: NOT REPORTED; 15 [MG/D ] / 7.5?15 MG DAILY, 8. ? 27.5. GESTATIONAL WEEK
     Route: 064
     Dates: start: 20190920, end: 20200205
  3. UTROGEST [Concomitant]
     Active Substance: PROGESTERONE
     Indication: CERVICAL INCOMPETENCE
     Dosage: 600 MILLIGRAM, QD (600 [MG/D], 3 SEPARATED DOSES), (15.? 27.5. GESTATIONAL WEEK)
     Route: 064
  4. VIVINOX [Concomitant]
     Indication: SLEEP DISORDER
     Dosage: 50 MILLIGRAM, QD (50 [MG/D ], 5.5. ? 9. GESTATIONAL WEEK); REPORTED AS: VIVINOX SLEEP SCHLAFTABLETTE
     Route: 064
  5. INSULIN [Concomitant]
     Active Substance: INSULIN NOS
     Indication: TYPE 2 DIABETES MELLITUS
     Dosage: DOSAGE INFORMATION: UNKNOWN, 7.4. ? 27.5. GESTATIONAL WEEK
     Route: 064
     Dates: start: 20190917, end: 20200205

REACTIONS (4)
  - Heart disease congenital [Unknown]
  - Premature baby [Recovered/Resolved]
  - Foetal exposure during pregnancy [Unknown]
  - Talipes [Not Recovered/Not Resolved]

NARRATIVE: CASE EVENT DATE: 20200205
